FAERS Safety Report 4476282-7 (Version None)
Quarter: 2004Q3

REPORT INFORMATION
  Report Type: 
  Country: None (occurrence: None)
  Receive Date: 20040923
  Receipt Date: 20040719
  Transmission Date: 20050211
  Serious: No
  Sender: FDA-Public Use
  Company Number: USA040772934

PATIENT
  Age: 70 Year
  Sex: Female
  Weight: 63 kg

DRUGS (5)
  1. FORTEO [Suspect]
     Dosage: 20 UG/ 1 DAY
     Dates: start: 20040422, end: 20040628
  2. LIPITOR [Concomitant]
  3. TOPROL-XL [Concomitant]
  4. ELAVIL [Concomitant]
  5. PRAVACHOL [Concomitant]

REACTIONS (1)
  - ALOPECIA [None]
